FAERS Safety Report 4774651-9 (Version None)
Quarter: 2005Q3

REPORT INFORMATION
  Report Type: 
  Country: None (occurrence: None)
  Receive Date: 20050914
  Receipt Date: 20050406
  Transmission Date: 20060218
  Serious: Yes (Hospitalization)
  Sender: FDA-Public Use
  Company Number: 163-20785-05040082

PATIENT
  Age: 76 Year
  Sex: Male
  Weight: 82 kg

DRUGS (12)
  1. THALOMID [Suspect]
     Indication: NON-SMALL CELL LUNG CANCER
     Dosage: 200 MG DAILY ORAL
     Route: 048
     Dates: start: 20050307, end: 20050313
  2. PACLITAXEL [Suspect]
     Indication: NON-SMALL CELL LUNG CANCER
     Dosage: 225 MG/M2, DAY 1 Q 21D X 2, INTRAVENOUS
     Route: 042
     Dates: start: 20050307, end: 20050307
  3. CARBOPLATIN [Suspect]
     Indication: NON-SMALL CELL LUNG CANCER
     Dosage: AUC= 6 ON DAY 1 Q 21 DAYS X 2, INTRAVENOUS
     Route: 042
     Dates: start: 20050307, end: 20050307
  4. XRT [Suspect]
     Indication: NON-SMALL CELL LUNG CANCER
     Dosage: 60 WKS BEGINNING DAYS 43-50
  5. ALTACE [Concomitant]
  6. ATENOLOL [Concomitant]
  7. GLIPIZIDE [Concomitant]
  8. LIPITOR [Concomitant]
  9. METFORMIN HCL [Concomitant]
  10. PLAVIX [Concomitant]
  11. PREDNISONE [Concomitant]
  12. PREVACID [Concomitant]

REACTIONS (3)
  - FATIGUE [None]
  - LEUKOPENIA [None]
  - NEUTROPHIL COUNT DECREASED [None]
